FAERS Safety Report 25345140 (Version 2)
Quarter: 2025Q2

REPORT INFORMATION
  Report Type: Report from Study
  Country: US (occurrence: US)
  Receive Date: 20250522
  Receipt Date: 20250608
  Transmission Date: 20250717
  Serious: Yes (Hospitalization)
  Sender: TAKEDA
  Company Number: US-TAKEDA-2025TUS013808

PATIENT
  Sex: Female
  Weight: 83 kg

DRUGS (4)
  1. TEDUGLUTIDE [Suspect]
     Active Substance: TEDUGLUTIDE
     Indication: Short-bowel syndrome
     Dosage: 4.25 MILLIGRAM, QD
  2. TEDUGLUTIDE [Suspect]
     Active Substance: TEDUGLUTIDE
  3. TEDUGLUTIDE [Suspect]
     Active Substance: TEDUGLUTIDE
  4. TEDUGLUTIDE [Suspect]
     Active Substance: TEDUGLUTIDE

REACTIONS (2)
  - Rhinovirus infection [Unknown]
  - Decreased appetite [Unknown]
